FAERS Safety Report 5600136-3 (Version None)
Quarter: 2008Q1

REPORT INFORMATION
  Report Type: 
  Country: None (occurrence: None)
  Receive Date: 20080123
  Receipt Date: 20080118
  Transmission Date: 20080703
  Serious: Yes (Other)
  Sender: FDA-Public Use
  Company Number: B0504413A

PATIENT
  Age: 74 Year
  Sex: Female

DRUGS (1)
  1. DILATREND [Suspect]
     Indication: CARDIAC FAILURE
     Route: 065

REACTIONS (4)
  - HYPOAESTHESIA [None]
  - INSOMNIA [None]
  - NERVOUSNESS [None]
  - SUICIDAL IDEATION [None]
